FAERS Safety Report 7535782-3 (Version None)
Quarter: 2011Q2

REPORT INFORMATION
  Report Type: 
  Country: None (occurrence: None)
  Receive Date: 20110609
  Receipt Date: 20110531
  Transmission Date: 20111010
  Serious: Yes (Hospitalization, Other)
  Sender: FDA-Public Use
  Company Number: US-ABBOTT-11P-163-0728302-00

PATIENT
  Sex: Female
  Weight: 63.56 kg

DRUGS (8)
  1. ENOXAPARIN [Suspect]
     Indication: HIP SURGERY
     Dates: start: 20110515, end: 20110523
  2. CLOBETASOL PROPIONATE [Concomitant]
     Indication: PRODUCT USED FOR UNKNOWN INDICATION
  3. LEVOTHYROXINE SODIUM [Concomitant]
     Indication: HYPOTHYROIDISM
  4. EFFEXOR [Concomitant]
     Indication: PRODUCT USED FOR UNKNOWN INDICATION
  5. ENOXAPARIN [Suspect]
     Indication: ANTICOAGULANT THERAPY
  6. BYETTA [Concomitant]
     Indication: DIABETES MELLITUS
  7. HUMIRA [Suspect]
     Indication: PSORIASIS
  8. HUMIRA [Suspect]
     Indication: PSORIATIC ARTHROPATHY
     Dates: start: 20110401, end: 20110514

REACTIONS (14)
  - ARTHRALGIA [None]
  - SKIN HAEMORRHAGE [None]
  - BLOOD TEST ABNORMAL [None]
  - SKIN PLAQUE [None]
  - JOINT ABSCESS [None]
  - STAPHYLOCOCCAL INFECTION [None]
  - ARTHRITIS [None]
  - THINKING ABNORMAL [None]
  - HAEMORRHAGE [None]
  - ARTHRITIS BACTERIAL [None]
  - COAGULOPATHY [None]
  - JOINT SWELLING [None]
  - JOINT EFFUSION [None]
  - FATIGUE [None]
